FAERS Safety Report 20138076 (Version 2)
Quarter: 2024Q3

REPORT INFORMATION
  Report Type: Spontaneous
  Country: IT (occurrence: IT)
  Receive Date: 20211202
  Receipt Date: 20240703
  Transmission Date: 20241016
  Serious: Yes (Life-Threatening, Other)
  Sender: SAMSUNG BIOEPIS
  Company Number: None

PATIENT
  Age: 36 Year
  Sex: Female

DRUGS (47)
  1. TRASTUZUMAB [Suspect]
     Active Substance: TRASTUZUMAB
     Indication: HER2 positive breast cancer
     Dosage: MAINTENANCE DOSE 4 CYCLES 6MG/KG
     Route: 065
  2. TRASTUZUMAB [Suspect]
     Active Substance: TRASTUZUMAB
     Indication: Hormone receptor positive breast cancer
     Dosage: LOADING DOSE 4 CYCLES 6 MG/KG
     Route: 065
  3. TRASTUZUMAB [Suspect]
     Active Substance: TRASTUZUMAB
     Indication: Breast cancer metastatic
     Dosage: 6 MG/KG (MAINTENANCE DOSE 4 CYCLES)
     Route: 065
  4. TRASTUZUMAB [Suspect]
     Active Substance: TRASTUZUMAB
     Indication: Invasive ductal breast carcinoma
     Dosage: LOADING DOSE 4 CYCLES, 8 MG/KG
     Route: 065
     Dates: start: 201201, end: 201204
  5. TRASTUZUMAB [Suspect]
     Active Substance: TRASTUZUMAB
     Indication: Triple positive breast cancer
     Dosage: MAINTENANCE DOSE 4 CYCLES, 6 MG/KG
     Route: 065
     Dates: start: 201907, end: 201912
  6. TRASTUZUMAB [Suspect]
     Active Substance: TRASTUZUMAB
     Indication: Invasive ductal breast carcinoma
     Dosage: 12 MG/KG, 2 CYCLICAL, EVERY THREE WEEKS FOR FOUR CYCLES
     Route: 065
  7. TRASTUZUMAB [Suspect]
     Active Substance: TRASTUZUMAB
     Dosage: 16 MG/KG 2 CYCLICAL, EVERY THREE WEEKS FOR FOUR CYCLES
     Route: 065
  8. CYCLOPHOSPHAMIDE [Suspect]
     Active Substance: CYCLOPHOSPHAMIDE
     Indication: HER2 positive breast cancer
     Dosage: 600 MILLIGRAMS PER SQUARE METER, EVERY 2 WEEKS
     Route: 065
  9. CYCLOPHOSPHAMIDE [Suspect]
     Active Substance: CYCLOPHOSPHAMIDE
     Indication: Hormone receptor positive breast cancer
     Route: 065
  10. CYCLOPHOSPHAMIDE [Suspect]
     Active Substance: CYCLOPHOSPHAMIDE
     Indication: Invasive ductal breast carcinoma
     Dosage: 600 MG/M2, PER 1 CYCLE (EVERY THREE WEEKS FOR FOUR CYCLES)
     Route: 065
     Dates: start: 201201, end: 201204
  11. DOCETAXEL [Suspect]
     Active Substance: DOCETAXEL\DOCETAXEL ANHYDROUS
     Indication: Hormone receptor positive breast cancer
     Dosage: 100 MG/M2, PER CYCLE (EVERY THREE WEEKS FOR FOUR CYCLES)
     Route: 065
  12. DOCETAXEL [Suspect]
     Active Substance: DOCETAXEL\DOCETAXEL ANHYDROUS
     Indication: HER2 positive breast cancer
     Dosage: RESUMED AT 25 PERCENT REDUCED DOSE
     Route: 065
  13. DOCETAXEL [Suspect]
     Active Substance: DOCETAXEL\DOCETAXEL ANHYDROUS
     Indication: Invasive ductal breast carcinoma
     Dosage: 100 MG/M2
     Route: 065
  14. DOCETAXEL [Suspect]
     Active Substance: DOCETAXEL\DOCETAXEL ANHYDROUS
     Indication: Triple positive breast cancer
     Dosage: 200 MG/M2, 2 CYCLICAL
     Route: 065
  15. DOCETAXEL [Suspect]
     Active Substance: DOCETAXEL\DOCETAXEL ANHYDROUS
     Indication: Invasive ductal breast carcinoma
  16. CAPECITABINE [Suspect]
     Active Substance: CAPECITABINE
     Indication: Hormone receptor positive breast cancer
     Dosage: DAY1 - DAY 14
     Route: 065
     Dates: start: 201810
  17. CAPECITABINE [Suspect]
     Active Substance: CAPECITABINE
     Indication: HER2 positive breast cancer
  18. CYCLOPHOSPHAMIDE [Suspect]
     Active Substance: CYCLOPHOSPHAMIDE
     Indication: Invasive ductal breast carcinoma
     Dosage: 600 MG/M2, PER 1 CYCLE (EVERY THREE WEEKS FOR FOUR CYCLES)
     Route: 065
     Dates: start: 201201, end: 201204
  19. LAPATINIB [Suspect]
     Active Substance: LAPATINIB
     Indication: Hormone receptor positive breast cancer
     Dosage: 1250 MG, QD
     Route: 065
  20. LAPATINIB [Suspect]
     Active Substance: LAPATINIB
     Indication: HER2 positive breast cancer
  21. PERTUZUMAB [Suspect]
     Active Substance: PERTUZUMAB
     Indication: Hormone receptor positive breast cancer
     Dosage: UNKNOWN
     Route: 065
  22. PERTUZUMAB [Suspect]
     Active Substance: PERTUZUMAB
     Indication: HER2 positive breast cancer
  23. GEMCITABINE [Suspect]
     Active Substance: GEMCITABINE
     Indication: Hormone receptor positive breast cancer
     Dosage: DAY 1, DAY 8
     Route: 065
  24. GEMCITABINE [Suspect]
     Active Substance: GEMCITABINE
     Indication: HER2 positive breast cancer
     Dosage: UNKNOWN
     Route: 065
  25. GEMCITABINE [Suspect]
     Active Substance: GEMCITABINE
     Indication: Triple positive breast cancer
  26. GEMCITABINE [Suspect]
     Active Substance: GEMCITABINE
     Indication: Breast cancer metastatic
  27. PACLITAXEL [Suspect]
     Active Substance: PACLITAXEL
     Indication: Hormone receptor positive breast cancer
     Route: 065
  28. PACLITAXEL [Suspect]
     Active Substance: PACLITAXEL
     Indication: HER2 positive breast cancer
     Dosage: 260 MG/M2 (FIFTH-LINE THERAPY, RECEIVED NINE COURSES)
     Route: 065
     Dates: start: 201907, end: 201912
  29. PACLITAXEL [Suspect]
     Active Substance: PACLITAXEL
     Indication: Breast cancer metastatic
     Dosage: UNKNOWN
     Route: 065
  30. PACLITAXEL [Suspect]
     Active Substance: PACLITAXEL
     Indication: Triple positive breast cancer
  31. NAVELBINE [Suspect]
     Active Substance: VINORELBINE TARTRATE
     Indication: HER2 positive breast cancer
     Dosage: 25 MG/KG, EVERY 3 WEEKS (DAY 1-DAY8)
     Route: 065
  32. NAVELBINE [Suspect]
     Active Substance: VINORELBINE TARTRATE
     Indication: Hormone receptor positive breast cancer
  33. DOXORUBICIN HYDROCHLORIDE [Suspect]
     Active Substance: DOXORUBICIN HYDROCHLORIDE
     Indication: Invasive ductal breast carcinoma
     Dosage: (60 MG/M2,1 IN 3 WK)
     Route: 065
  34. ADO-TRASTUZUMAB EMTANSINE [Suspect]
     Active Substance: ADO-TRASTUZUMAB EMTANSINE
     Indication: Hormone receptor positive breast cancer
     Route: 065
     Dates: start: 201608
  35. ADO-TRASTUZUMAB EMTANSINE [Suspect]
     Active Substance: ADO-TRASTUZUMAB EMTANSINE
     Indication: HER2 positive breast cancer
  36. DENOSUMAB [Suspect]
     Active Substance: DENOSUMAB
     Indication: HER2 positive breast cancer
     Dosage: UNKNOWN, EVERY 4 WEEKS
     Route: 065
  37. DENOSUMAB [Suspect]
     Active Substance: DENOSUMAB
     Indication: Hormone receptor positive breast cancer
  38. FILGRASTIM [Suspect]
     Active Substance: FILGRASTIM
     Indication: Prophylaxis
     Dosage: UNKNOWN
     Route: 065
  39. DOXORUBICIN [Suspect]
     Active Substance: DOXORUBICIN
     Indication: HER2 positive breast cancer
     Dosage: 60 MILLIGRAMS PER SQUARE METER, EVERY 3 WEEKS, 4 CYCLES
     Route: 065
  40. DOXORUBICIN [Suspect]
     Active Substance: DOXORUBICIN
     Indication: Hormone receptor positive breast cancer
  41. XGEVA [Suspect]
     Active Substance: DENOSUMAB
     Indication: Metastases to bone
     Dosage: UNKNOWN
     Route: 065
  42. VINORELBINE [Suspect]
     Active Substance: VINORELBINE TARTRATE
     Indication: Product used for unknown indication
     Dosage: UNKNOWN
     Route: 065
  43. GLUTATHIONE [Suspect]
     Active Substance: GLUTATHIONE
     Indication: Triple positive breast cancer
     Dosage: UNKNOWN, SIXTH CYCLE OF CHEMOTHERAPY
     Route: 065
  44. GLUTATHIONE [Suspect]
     Active Substance: GLUTATHIONE
     Indication: Breast cancer metastatic
     Dosage: UNKNOWN
     Route: 065
  45. TAMOXIFEN [Concomitant]
     Active Substance: TAMOXIFEN
     Indication: Product used for unknown indication
     Dosage: UNKNOWN
     Route: 065
  46. GONADORELIN DIACETATE TETRAHYDRATE [Concomitant]
     Active Substance: GONADORELIN DIACETATE TETRAHYDRATE
     Indication: Product used for unknown indication
     Dosage: UNKNOWN
     Route: 065
  47. PACLITAXEL [Concomitant]
     Active Substance: PACLITAXEL
     Indication: Product used for unknown indication
     Dosage: UNKNOWN
     Route: 065

REACTIONS (10)
  - Metastases to bone [Unknown]
  - Metastases to lymph nodes [Unknown]
  - Metastases to lung [Unknown]
  - Hepatotoxicity [Recovering/Resolving]
  - Neutropenia [Recovered/Resolved]
  - Hypertransaminasaemia [Recovering/Resolving]
  - Thrombocytopenia [Recovered/Resolved]
  - Anaemia [Recovered/Resolved]
  - Pain in extremity [Recovered/Resolved]
  - Mucosal inflammation [Recovered/Resolved]

NARRATIVE: CASE EVENT DATE: 20120101
